FAERS Safety Report 23517049 (Version 1)
Quarter: 2024Q1

REPORT INFORMATION
  Report Type: Spontaneous
  Country: ES (occurrence: ES)
  Receive Date: 20240213
  Receipt Date: 20240213
  Transmission Date: 20240410
  Serious: Yes (Other)
  Sender: FDA-Public Use
  Company Number: ES-AMGEN-ESPSP2024027080

PATIENT
  Age: 86 Year
  Sex: Female

DRUGS (2)
  1. CINACALCET HYDROCHLORIDE [Suspect]
     Active Substance: CINACALCET HYDROCHLORIDE
     Indication: Hyperparathyroidism
     Dosage: UNK, 30 MG FILM COATED 28 TABLETS
     Route: 048
     Dates: start: 2021, end: 20231125
  2. PHOSPHORIC ACID\SODIUM PHOSPHATE, DIBASIC [Suspect]
     Active Substance: PHOSPHORIC ACID\SODIUM PHOSPHATE, DIBASIC
     Indication: Faecaloma
     Dosage: 1 DOSAGE FORM, QD (2 DOSAGE) (136MG/ML PLUS 32MG/ML RECTAL SOLUTION, 1 ENEMA OF 140ML )
     Route: 054
     Dates: start: 20231124, end: 20231125

REACTIONS (2)
  - Hyperphosphataemia [Recovered/Resolved]
  - Hypocalcaemia [Recovered/Resolved]

NARRATIVE: CASE EVENT DATE: 20231125
